FAERS Safety Report 15508215 (Version 1)
Quarter: 2018Q4

REPORT INFORMATION
  Report Type: Spontaneous
  Country: FR (occurrence: FR)
  Receive Date: 20181016
  Receipt Date: 20181016
  Transmission Date: 20190205
  Serious: Yes (Other)
  Sender: FDA-Public Use
  Company Number: FR-TEVA-2018-FR-964632

PATIENT
  Age: 78 Year
  Sex: Male
  Weight: 80 kg

DRUGS (8)
  1. HYDROCHLOROTHIAZIDE. [Concomitant]
     Active Substance: HYDROCHLOROTHIAZIDE
     Indication: HYPERTENSION
     Dosage: 6.25 MILLIGRAM DAILY;
     Route: 048
     Dates: start: 201712
  2. ZANEXTRA 20 MG/20 MG, COMPRIM? PELLICUL? [Concomitant]
     Indication: HYPERTENSION
     Route: 048
     Dates: start: 201712
  3. EUPRESSYL 60 MG, G?LULE [Concomitant]
     Active Substance: URAPIDIL
     Indication: HYPERTENSION
     Dosage: 1 DOSAGE FORMS DAILY;
     Route: 048
     Dates: start: 201712
  4. KAYEXALATE [Concomitant]
     Active Substance: SODIUM POLYSTYRENE SULFONATE
     Indication: HYPERKALAEMIA
     Dosage: 1 DOSAGE FORMS DAILY;
     Route: 048
  5. BISOPROLOL (HEMIFUMARATE DE) [Suspect]
     Active Substance: BISOPROLOL FUMARATE
     Indication: HYPERTENSION
     Dosage: 10 MILLIGRAM DAILY;
     Route: 048
     Dates: start: 2008
  6. SEROPLEX [Concomitant]
     Active Substance: ESCITALOPRAM OXALATE
     Indication: DEPRESSION
     Dosage: 10 MILLIGRAM DAILY;
     Route: 048
  7. KARDEGIC [Concomitant]
     Active Substance: ASPIRIN DL-LYSINE
     Indication: CARDIOVASCULAR EVENT PROPHYLAXIS
     Dosage: 825 MILLIGRAM DAILY;
     Route: 048
  8. DOLIPRANE [Concomitant]
     Active Substance: ACETAMINOPHEN
     Route: 048

REACTIONS (1)
  - Hyperkalaemia [Recovered/Resolved]

NARRATIVE: CASE EVENT DATE: 201512
